FAERS Safety Report 8041952-0 (Version None)
Quarter: 2012Q1

REPORT INFORMATION
  Report Type: 
  Country: None (occurrence: None)
  Receive Date: 20120112
  Receipt Date: 20120106
  Transmission Date: 20120608
  Serious: Yes (Other)
  Sender: FDA-Public Use
  Company Number: PHHY2012MX001637

PATIENT
  Sex: Female

DRUGS (4)
  1. VITAMIN C [Concomitant]
  2. CALCIUM [Concomitant]
  3. TRILEPTAL [Suspect]
     Indication: EPILEPSY
     Dosage: 1 DF, QD
     Route: 048
  4. LEVISTA [Concomitant]

REACTIONS (4)
  - MULTIPLE FRACTURES [None]
  - HYPOAESTHESIA [None]
  - FALL [None]
  - SCIATICA [None]
